FAERS Safety Report 12634219 (Version 1)
Quarter: 2016Q3

REPORT INFORMATION
  Report Type: Spontaneous
  Country: US (occurrence: US)
  Receive Date: 20160808
  Receipt Date: 20160808
  Transmission Date: 20161109
  Serious: No
  Sender: FDA-Public Use
  Company Number: US-BAYER-2016-152514

PATIENT
  Age: 9 Year
  Sex: Female
  Weight: 39.46 kg

DRUGS (1)
  1. MIRALAX [Suspect]
     Active Substance: POLYETHYLENE GLYCOL 3350
     Indication: CONSTIPATION
     Dosage: HALF DOSE, QD
     Route: 048
     Dates: start: 2015

REACTIONS (2)
  - Drug administered to patient of inappropriate age [None]
  - Product use issue [None]

NARRATIVE: CASE EVENT DATE: 2016
